FAERS Safety Report 11245769 (Version 1)
Quarter: 2015Q3

REPORT INFORMATION
  Report Type: Report from Study
  Country: US (occurrence: US)
  Receive Date: 20150707
  Receipt Date: 20150707
  Transmission Date: 20151125
  Serious: Yes (Other)
  Sender: FDA-Public Use
  Company Number: US-ACTELION-A-NJ2015-120471

PATIENT
  Age: 52 Year
  Sex: Male

DRUGS (3)
  1. ELIQUIS [Concomitant]
     Active Substance: APIXABAN
  2. RYTHMOL [Concomitant]
     Active Substance: PROPAFENONE HYDROCHLORIDE
  3. MACITENTAN [Suspect]
     Active Substance: MACITENTAN
     Indication: PULMONARY HYPERTENSION
     Dosage: 10 MG, UNK
     Route: 048
     Dates: start: 20140620

REACTIONS (1)
  - Cardiac disorder [Not Recovered/Not Resolved]
